FAERS Safety Report 8621931-2 (Version None)
Quarter: 2012Q3

REPORT INFORMATION
  Report Type: 
  Country: None (occurrence: None)
  Receive Date: 20120822
  Receipt Date: 20120822
  Transmission Date: 20120928
  Serious: Yes (Other)
  Sender: FDA-Public Use
  Company Number: None

PATIENT
  Sex: Female
  Weight: 136.0791 kg

DRUGS (1)
  1. AVONEX [Suspect]
     Indication: MULTIPLE SCLEROSIS
     Dosage: INJECTABLE WEEKLY INTRAMUSCULAR 030
     Route: 030
     Dates: start: 20111001, end: 20120701

REACTIONS (1)
  - MUSCLE TIGHTNESS [None]
